FAERS Safety Report 7028231-5 (Version None)
Quarter: 2010Q4

REPORT INFORMATION
  Report Type: 
  Country: None (occurrence: None)
  Receive Date: 20101005
  Receipt Date: 20100920
  Transmission Date: 20110411
  Serious: Yes (Hospitalization, Other)
  Sender: FDA-Public Use
  Company Number: CA-GENENTECH-306159

PATIENT
  Sex: Male

DRUGS (4)
  1. LUCENTIS [Suspect]
     Indication: PRODUCT USED FOR UNKNOWN INDICATION
     Dosage: UNK
     Route: 031
     Dates: start: 20100507
  2. COUMADIN [Concomitant]
     Indication: ATRIAL FIBRILLATION
  3. PLAVIX [Concomitant]
     Indication: ATRIAL FIBRILLATION
  4. TYLENOL [Concomitant]
     Indication: ATRIAL FIBRILLATION

REACTIONS (4)
  - CORONARY ARTERIAL STENT INSERTION [None]
  - POLYARTHRITIS [None]
  - SEPSIS [None]
  - SWELLING [None]
